FAERS Safety Report 21232423 (Version 1)
Quarter: 2022Q3

REPORT INFORMATION
  Report Type: Spontaneous
  Country: US (occurrence: US)
  Receive Date: 20220819
  Receipt Date: 20220819
  Transmission Date: 20221027
  Serious: No
  Sender: FDA-Public Use
  Company Number: US-GSKCCFUS-Case-01464799_AE-83869

PATIENT
  Age: 44 Year
  Sex: Female

DRUGS (1)
  1. NUCALA [Suspect]
     Active Substance: MEPOLIZUMAB
     Indication: Product used for unknown indication
     Dosage: UNK
     Dates: start: 20190813

REACTIONS (8)
  - Antinuclear antibody positive [Unknown]
  - Lip swelling [Not Recovered/Not Resolved]
  - Oral discomfort [Unknown]
  - Dysphagia [Recovered/Resolved]
  - Erythema [Unknown]
  - Product dose omission issue [Unknown]
  - Skin fissures [Unknown]
  - Oral discomfort [Unknown]

NARRATIVE: CASE EVENT DATE: 20220721
